FAERS Safety Report 7246172-5 (Version None)
Quarter: 2011Q1

REPORT INFORMATION
  Report Type: 
  Country: None (occurrence: None)
  Receive Date: 20110126
  Receipt Date: 20110119
  Transmission Date: 20110831
  Serious: Yes (Congenital Anomaly)
  Sender: FDA-Public Use
  Company Number: A0908807B

PATIENT
  Sex: Male

DRUGS (1)
  1. PAXIL [Suspect]
     Route: 048

REACTIONS (8)
  - LUNG DISORDER [None]
  - CONVULSION [None]
  - AGGRESSION [None]
  - ASTHMA [None]
  - CARDIAC MURMUR [None]
  - ATTENTION DEFICIT/HYPERACTIVITY DISORDER [None]
  - OPPOSITIONAL DEFIANT DISORDER [None]
  - DRUG EXPOSURE DURING PREGNANCY [None]
